FAERS Safety Report 18304056 (Version 1)
Quarter: 2020Q3

REPORT INFORMATION
  Report Type: Spontaneous
  Country: US (occurrence: US)
  Receive Date: 20200923
  Receipt Date: 20200923
  Transmission Date: 20201103
  Serious: Yes (Congenital Anomaly)
  Sender: FDA-Public Use
  Company Number: US-SA-2020SA252851

PATIENT

DRUGS (1)
  1. ZANTAC [Suspect]
     Active Substance: RANITIDINE HYDROCHLORIDE
     Route: 048

REACTIONS (5)
  - Congenital anomaly [Unknown]
  - Anxiety [Unknown]
  - Pain [Unknown]
  - Foetal exposure during pregnancy [Unknown]
  - Anhedonia [Unknown]
